FAERS Safety Report 6288017-6 (Version None)
Quarter: 2009Q3

REPORT INFORMATION
  Report Type: 
  Country: None (occurrence: None)
  Receive Date: 20090729
  Receipt Date: 20090716
  Transmission Date: 20100115
  Serious: Yes (Hospitalization)
  Sender: FDA-Public Use
  Company Number: US-ROCHE-644440

PATIENT
  Sex: Male

DRUGS (2)
  1. PEGASYS [Suspect]
     Route: 065
  2. COPEGUS [Suspect]
     Dosage: DOSE:  200 MG (3) BID
     Route: 065

REACTIONS (1)
  - DEEP VEIN THROMBOSIS [None]
